FAERS Safety Report 6846299-3 (Version None)
Quarter: 2010Q3

REPORT INFORMATION
  Report Type: 
  Country: None (occurrence: None)
  Receive Date: 20100715
  Receipt Date: 20070917
  Transmission Date: 20110219
  Serious: No
  Sender: FDA-Public Use
  Company Number: US-PFIZER INC-2007077466

PATIENT
  Sex: Female
  Weight: 88.6 kg

DRUGS (11)
  1. CHANTIX [Suspect]
     Indication: SMOKING CESSATION THERAPY
     Dates: start: 20070913, end: 20070915
  2. PAXIL [Concomitant]
  3. LIPITOR [Concomitant]
  4. HYDROCHLOROTHIAZIDE [Concomitant]
  5. ALTACE [Concomitant]
  6. PLAVIX [Concomitant]
  7. NEXIUM [Concomitant]
  8. CORTISONE [Concomitant]
  9. ACETYLSALICYLIC ACID [Concomitant]
  10. NORVASC [Concomitant]
  11. WELLBUTRIN [Concomitant]

REACTIONS (1)
  - ABDOMINAL PAIN UPPER [None]
